FAERS Safety Report 9642266 (Version 1)
Quarter: 2013Q4

REPORT INFORMATION
  Report Type: Spontaneous
  Country: US (occurrence: US)
  Receive Date: 20131024
  Receipt Date: 20131024
  Transmission Date: 20140711
  Serious: No
  Sender: FDA-Public Use
  Company Number: US-009507513-1310USA009815

PATIENT
  Sex: 0

DRUGS (2)
  1. ASMANEX TWISTHALER [Suspect]
     Dosage: 220 MICROGRAM, QAM, ORAL INHALATION
     Route: 055
     Dates: start: 20130823
  2. ASMANEX TWISTHALER [Suspect]
     Dosage: 220 MICROGRAM, QAM, ORAL INHALATION
     Route: 055
     Dates: start: 20130823

REACTIONS (4)
  - Drug dose omission [Unknown]
  - Inappropriate schedule of drug administration [Unknown]
  - Product packaging issue [Unknown]
  - No adverse event [Unknown]
